FAERS Safety Report 6502695-5 (Version None)
Quarter: 2009Q4

REPORT INFORMATION
  Report Type: 
  Country: None (occurrence: None)
  Receive Date: 20091217
  Receipt Date: 20091208
  Transmission Date: 20100525
  Serious: Yes (Hospitalization, Other)
  Sender: FDA-Public Use
  Company Number: US-JNJFOC-20091204195

PATIENT
  Age: 22 Month
  Sex: Female

DRUGS (1)
  1. HALOPERIDOL [Suspect]
     Indication: DRUG USE FOR UNKNOWN INDICATION
     Dosage: 15 OR 20 MG OF HALOPERIDOL
     Route: 048

REACTIONS (8)
  - ACCIDENTAL DRUG INTAKE BY CHILD [None]
  - DRUG TOXICITY [None]
  - DYSTONIA [None]
  - HYPERTENSION [None]
  - LETHARGY [None]
  - MUSCLE RIGIDITY [None]
  - TREMOR [None]
  - URTICARIA [None]
